FAERS Safety Report 10551471 (Version 1)
Quarter: 2014Q4

REPORT INFORMATION
  Report Type: Spontaneous
  Country: US (occurrence: None)
  Receive Date: 20141027
  Receipt Date: 20141027
  Transmission Date: 20150529
  Serious: Yes (Hospitalization)
  Sender: FDA-Public Use
  Company Number: FR-SEPTODONT-201301618

PATIENT
  Age: 69 Year
  Sex: Female
  Weight: 68 kg

DRUGS (1)
  1. ARTICAINE HYDROCHLORIDE AND EPINEPHRINE BITARTRATE [Suspect]
     Active Substance: ARTICAINE HYDROCHLORIDE\EPINEPHRINE BITARTRATE
     Indication: LOCAL ANAESTHESIA
     Route: 004
     Dates: start: 20131119, end: 20131119

REACTIONS (7)
  - Muscular weakness [None]
  - Bradycardia [None]
  - Loss of consciousness [None]
  - Malaise [None]
  - Nausea [None]
  - Chills [None]
  - Hypertension [None]

NARRATIVE: CASE EVENT DATE: 20131119
